FAERS Safety Report 6255952-4 (Version None)
Quarter: 2009Q3

REPORT INFORMATION
  Report Type: 
  Country: None (occurrence: None)
  Receive Date: 20090706
  Receipt Date: 20090702
  Transmission Date: 20100115
  Serious: Yes (Other)
  Sender: FDA-Public Use
  Company Number: CN-BRISTOL-MYERS SQUIBB COMPANY-14473920

PATIENT
  Age: 62 Year
  Sex: Female

DRUGS (1)
  1. CEFEPIME [Suspect]

REACTIONS (4)
  - APHASIA [None]
  - MUSCLE TWITCHING [None]
  - MUSCULAR WEAKNESS [None]
  - SOMNOLENCE [None]
